FAERS Safety Report 10271947 (Version 1)
Quarter: 2014Q3

REPORT INFORMATION
  Report Type: Spontaneous
  Country: IE (occurrence: IE)
  Receive Date: 20140702
  Receipt Date: 20140702
  Transmission Date: 20150326
  Serious: Yes (Death, Other)
  Sender: FDA-Public Use
  Company Number: PHHY2014IE078979

PATIENT
  Age: 60 Year
  Sex: Female

DRUGS (5)
  1. DAUNORUBICIN [Suspect]
     Active Substance: DAUNORUBICIN
  2. THIOGUANINE [Suspect]
     Active Substance: THIOGUANINE
  3. HYDROXYUREA. [Suspect]
     Active Substance: HYDROXYUREA
  4. CYTARABINE. [Suspect]
     Active Substance: CYTARABINE
  5. IMATINIB [Suspect]
     Active Substance: IMATINIB
     Indication: CHRONIC MYELOID LEUKAEMIA

REACTIONS (7)
  - Death [Fatal]
  - Myeloblast count increased [Unknown]
  - General physical health deterioration [Unknown]
  - Lymphadenopathy [Unknown]
  - Leukaemia recurrent [Unknown]
  - Chronic myeloid leukaemia [Unknown]
  - Drug ineffective [Unknown]
